FAERS Safety Report 5572966-8 (Version None)
Quarter: 2007Q4

REPORT INFORMATION
  Report Type: 
  Country: None (occurrence: None)
  Receive Date: 20071219
  Receipt Date: 20071219
  Transmission Date: 20080405
  Serious: No
  Sender: FDA-Public Use
  Company Number: None

PATIENT
  Age: 17 Year
  Sex: Male
  Weight: 63.05 kg

DRUGS (9)
  1. BENZTROPINE MESYLATE [Suspect]
     Dosage: 2MG TID  PO
     Route: 048
  2. HALOPERIDOL [Suspect]
     Dosage: 15MG BID PO
     Route: 048
  3. ARIPIPRAZOLE [Concomitant]
  4. ADVAIR DISKUS 100/50 [Concomitant]
  5. OXCARBAZEPINE [Concomitant]
  6. LORAZEPAM [Concomitant]
  7. LOPERAMIDE HCL [Concomitant]
  8. COLACE [Concomitant]
  9. AMBIEN [Concomitant]

REACTIONS (1)
  - DYSURIA [None]
